FAERS Safety Report 4621569-8 (Version None)
Quarter: 2005Q1

REPORT INFORMATION
  Report Type: 
  Country: None (occurrence: None)
  Receive Date: 20050329
  Receipt Date: 20050314
  Transmission Date: 20050727
  Serious: Yes (Life-Threatening, Other)
  Sender: FDA-Public Use
  Company Number: 2005041938

PATIENT
  Sex: Male

DRUGS (14)
  1. DETROL LA [Suspect]
     Indication: ILL-DEFINED DISORDER
     Dosage: 4 MG (4 MG, 1 IN 1 D), ORAL
     Route: 048
     Dates: start: 20000101
  2. CELEBREX [Suspect]
     Indication: ARTHRITIS
  3. CHEMOTHERAPY NOS (CHEMOTHERAPY NOS) [Suspect]
     Indication: LYMPHOMA
     Dates: start: 20050301
  4. ROFECOXIB [Suspect]
     Indication: ARTHRITIS
  5. NAPROXEN SODIUM [Suspect]
     Indication: ARTHRITIS
  6. IBUPROFEN [Suspect]
     Indication: ARTHRITIS
  7. ASPIRIN [Concomitant]
  8. FLUTICASONE PROPIONATE [Concomitant]
  9. FEXOFENADINE HYDROCHLORIDE [Concomitant]
  10. MULTIVITAMINS (ASCORBIC ACID, ERGOCALCIFEROL, FOLIC ACID, NICOTINAMIDE [Concomitant]
  11. TOCOPHEROL (TOCOPHEROL) [Concomitant]
  12. TEMAZEPAM [Concomitant]
  13. TAMSULOSIN (TAMSULOSIN) [Concomitant]
  14. QUININE (QUININE) [Concomitant]

REACTIONS (10)
  - CONSTIPATION [None]
  - DRY MOUTH [None]
  - HYPERTONIC BLADDER [None]
  - LYMPHOMA [None]
  - MEMORY IMPAIRMENT [None]
  - MICTURITION URGENCY [None]
  - NAUSEA [None]
  - PROCEDURAL COMPLICATION [None]
  - SPINAL COLUMN STENOSIS [None]
  - STOMACH DISCOMFORT [None]
